FAERS Safety Report 18514380 (Version 1)
Quarter: 2020Q4

REPORT INFORMATION
  Report Type: Other
  Country: CA (occurrence: CA)
  Receive Date: 20201117
  Receipt Date: 20201117
  Transmission Date: 20210114
  Serious: Yes (Other)
  Sender: FDA-Public Use
  Company Number: CA-CELLTRION INC.-2020CA031238

PATIENT

DRUGS (17)
  1. HEPARIN [Concomitant]
     Active Substance: HEPARIN SODIUM
     Dosage: UNK
  2. HYDROXYCHLOROQUINE SULFATE. [Concomitant]
     Active Substance: HYDROXYCHLOROQUINE SULFATE
     Dosage: 200.0 MILLIGRAM
     Route: 065
  3. SEVELAMER HCL [Concomitant]
     Active Substance: SEVELAMER HYDROCHLORIDE
     Dosage: 800.0 MILLIGRAM, 2 EVERY 1 DAY
     Route: 048
  4. SODIUM CITRATE. [Concomitant]
     Active Substance: SODIUM CITRATE
     Dosage: UNK
  5. PREDNISONE. [Concomitant]
     Active Substance: PREDNISONE
     Dosage: 5.0 MILLIGRAM
     Route: 048
  6. SODIUM FERRIC GLUCONATE COMPLEX IN SUCROSE INJECTION [Concomitant]
     Active Substance: SODIUM FERRIC GLUCONATE COMPLEX
     Dosage: 125.0 MILLIGRAM
     Route: 042
  7. TELMISARTAN. [Concomitant]
     Active Substance: TELMISARTAN
     Dosage: 40.0 MILLIGRAM, 1 EVERY 1 DAY
     Route: 048
  8. TRANEXAMIC ACID. [Concomitant]
     Active Substance: TRANEXAMIC ACID
     Dosage: 500.0 MILLIGRAM, 1 EVERY 1 DAY
     Route: 048
  9. FERROUS FUMARATE [Concomitant]
     Active Substance: FERROUS FUMARATE
     Dosage: 300.0 MILLIGRAM
     Route: 048
  10. POLYSPORIN TRIPLE [Concomitant]
     Dosage: UNK
     Route: 065
  11. AMLODIPINE BESILATE [Concomitant]
     Active Substance: AMLODIPINE BESYLATE
     Dosage: 7.5 MILLIGRAM, 1 EVERY 1 DAY
     Route: 048
  12. AZATHIOPRINE. [Concomitant]
     Active Substance: AZATHIOPRINE
     Dosage: 25.0 MILLIGRAM, 1 EVERY 1 DAY
     Route: 048
  13. RITUXIMAB (UNKNOWN) [Suspect]
     Active Substance: RITUXIMAB
     Indication: MICROSCOPIC POLYANGIITIS
     Dosage: UNK, 1 EVERY 1 WEEK
     Route: 042
  14. RITUXIMAB (UNKNOWN) [Suspect]
     Active Substance: RITUXIMAB
     Indication: END STAGE RENAL DISEASE
  15. FOLIC ACID. [Concomitant]
     Active Substance: FOLIC ACID
     Dosage: UNK, 1 EVERY 1 DAY
     Route: 048
  16. LEVETIRACETAM. [Concomitant]
     Active Substance: LEVETIRACETAM
     Dosage: 250.0 MILLIGRAM, 2 EVERY 1 DAY
     Route: 048
  17. PANTOPRAZOLE [Concomitant]
     Active Substance: PANTOPRAZOLE
     Dosage: 40.0 MILLIGRAM, 1 EVERY 1 DAY
     Route: 048

REACTIONS (4)
  - Nasopharyngitis [Unknown]
  - Fistula [Unknown]
  - Cough [Unknown]
  - Off label use [Unknown]
